FAERS Safety Report 9843290 (Version 3)
Quarter: 2014Q2

REPORT INFORMATION
  Report Type: Report from Study
  Country: GB (occurrence: GB)
  Receive Date: 20140125
  Receipt Date: 20140418
  Transmission Date: 20141212
  Serious: Yes (Death, Hospitalization)
  Sender: FDA-Public Use
  Company Number: GB-ROCHE-1338921

PATIENT
  Age: 91 Year
  Sex: Female

DRUGS (8)
  1. RANIBIZUMAB [Suspect]
     Indication: AGE-RELATED MACULAR DEGENERATION
     Dosage: DOSE OF LUCENTIS PRIOR TO EVENT ON 22 FEB 2013.
     Route: 050
     Dates: start: 20110812
  2. BENDROFLUMETHIAZIDE [Concomitant]
     Indication: HYPERTENSION
  3. FELODIPINE [Concomitant]
     Indication: HYPERTENSION
     Route: 065
     Dates: start: 20070913
  4. FLUTICASONE [Concomitant]
     Indication: ASTHMA
     Route: 065
     Dates: start: 20101013
  5. CITALOPRAM [Concomitant]
     Indication: ANXIETY
     Route: 065
     Dates: start: 20110621
  6. CYCLIZINE [Concomitant]
  7. PARACETAMOL [Concomitant]
  8. MORPHINE SULFATE [Concomitant]

REACTIONS (4)
  - Death [Fatal]
  - Peritonitis [Fatal]
  - Intestinal perforation [Fatal]
  - Multi-organ failure [Fatal]
